FAERS Safety Report 7122101-X (Version None)
Quarter: 2010Q4

REPORT INFORMATION
  Report Type: 
  Country: None (occurrence: None)
  Receive Date: 20101115
  Receipt Date: 20070306
  Transmission Date: 20110411
  Serious: Yes (Death)
  Sender: FDA-Public Use
  Company Number: UTC-002053

PATIENT
  Sex: Female

DRUGS (1)
  1. REMODULIN [Suspect]
     Dosage: INTRAVENOUS

REACTIONS (1)
  - DEATH [None]
